FAERS Safety Report 21833480 (Version 1)
Quarter: 2023Q1

REPORT INFORMATION
  Report Type: Report from Study
  Country: US (occurrence: US)
  Receive Date: 20230107
  Receipt Date: 20230107
  Transmission Date: 20230418
  Serious: Yes (Other)
  Sender: FDA-Public Use
  Company Number: US-002147023-NVSC2023US001695

PATIENT
  Sex: Male

DRUGS (1)
  1. COSENTYX [Suspect]
     Active Substance: SECUKINUMAB
     Indication: Psoriasis
     Dosage: 300 MG, OTHER (2 PENS OF 150 MG/ML EVERY 4 WEEKS)
     Route: 058
     Dates: start: 20210113

REACTIONS (6)
  - Squamous cell carcinoma [Recovering/Resolving]
  - Basal cell carcinoma [Recovering/Resolving]
  - Intertrigo [Recovering/Resolving]
  - Actinic keratosis [Recovering/Resolving]
  - Guttate psoriasis [Recovering/Resolving]
  - Psoriasis [Recovering/Resolving]
